FAERS Safety Report 17007206 (Version 1)
Quarter: 2019Q4

REPORT INFORMATION
  Report Type: Spontaneous
  Country: CA (occurrence: CA)
  Receive Date: 20191107
  Receipt Date: 20191107
  Transmission Date: 20200122
  Serious: Yes (Other)
  Sender: FDA-Public Use
  Company Number: CA-SUN PHARMACEUTICAL INDUSTRIES LTD-2019R1-226699

PATIENT
  Sex: Female

DRUGS (4)
  1. AMITRIPTYLINE [Suspect]
     Active Substance: AMITRIPTYLINE
     Indication: PRODUCT USED FOR UNKNOWN INDICATION
     Dosage: 10 MILLIGRAM, DAILY AT BEDTIME
     Dates: start: 20191007, end: 20191009
  2. EPURIS [Suspect]
     Active Substance: ISOTRETINOIN
     Dosage: 60 MILLIGRAM, DAILY
     Route: 048
     Dates: start: 201906, end: 201910
  3. EPURIS [Suspect]
     Active Substance: ISOTRETINOIN
     Indication: ACNE
     Dosage: 30 MILLIGRAM, DAILY
     Route: 048
     Dates: start: 20190417
  4. EPURIS [Suspect]
     Active Substance: ISOTRETINOIN
     Dosage: 50 MILLIGRAM, DAILY
     Route: 048
     Dates: start: 20190518

REACTIONS (3)
  - Nerve injury [Unknown]
  - Tinnitus [Not Recovered/Not Resolved]
  - Ear discomfort [Recovered/Resolved]

NARRATIVE: CASE EVENT DATE: 2019
